FAERS Safety Report 23294202 (Version 2)
Quarter: 2023Q4

REPORT INFORMATION
  Report Type: Report from Study
  Country: BR (occurrence: BR)
  Receive Date: 20231213
  Receipt Date: 20231222
  Transmission Date: 20240109
  Serious: Yes (Hospitalization, Other)
  Sender: FDA-Public Use
  Company Number: BR-002147023-NVSC2023BR228212

PATIENT
  Age: 75 Year
  Sex: Female

DRUGS (4)
  1. KISQALI [Suspect]
     Active Substance: RIBOCICLIB
     Indication: Breast cancer
     Dosage: 3 DOSAGE FORM, QD
     Route: 048
     Dates: start: 20231018
  2. FEMARA [Suspect]
     Active Substance: LETROZOLE
     Indication: Breast cancer
     Dosage: 1 DOSAGE FORM, QD
     Route: 048
     Dates: start: 20231018
  3. FEMARA [Suspect]
     Active Substance: LETROZOLE
     Dosage: UNK
     Route: 065
  4. PANTOPRAZOLE [Suspect]
     Active Substance: PANTOPRAZOLE
     Indication: Gastrointestinal disorder
     Dosage: UNK
     Route: 065

REACTIONS (18)
  - Metastases to spine [Unknown]
  - Neck pain [Unknown]
  - Pneumonia [Unknown]
  - Sluggishness [Recovering/Resolving]
  - Discomfort [Unknown]
  - Illness [Unknown]
  - Gastrointestinal disorder [Unknown]
  - Somnolence [Unknown]
  - Tremor [Recovered/Resolved]
  - Fatigue [Recovered/Resolved]
  - Headache [Unknown]
  - Nausea [Unknown]
  - Dizziness [Unknown]
  - Gait disturbance [Unknown]
  - Spinal pain [Unknown]
  - Bone pain [Unknown]
  - Pain [Not Recovered/Not Resolved]
  - Fatigue [Unknown]

NARRATIVE: CASE EVENT DATE: 20231018
